FAERS Safety Report 5839250-6 (Version None)
Quarter: 2008Q3

REPORT INFORMATION
  Report Type: 
  Country: None (occurrence: None)
  Receive Date: 20080808
  Receipt Date: 20080731
  Transmission Date: 20090109
  Serious: Yes (Other)
  Sender: FDA-Public Use
  Company Number: PT-PFIZER INC-2008059655

PATIENT
  Age: 76 Year
  Sex: Male

DRUGS (4)
  1. ZARATOR [Suspect]
     Indication: HYPERCHOLESTEROLAEMIA
     Route: 048
  2. FLUTAMIDE [Concomitant]
     Indication: PROSTATE CANCER
     Route: 048
  3. DRUG, UNSPECIFIED [Concomitant]
  4. OMNIC [Concomitant]
     Route: 048

REACTIONS (3)
  - FEELING ABNORMAL [None]
  - PALPITATIONS [None]
  - RESPIRATORY DISORDER [None]
